FAERS Safety Report 6123629-1 (Version None)
Quarter: 2009Q1

REPORT INFORMATION
  Report Type: 
  Country: None (occurrence: None)
  Receive Date: 20090319
  Receipt Date: 20090316
  Transmission Date: 20090719
  Serious: Yes (Hospitalization)
  Sender: FDA-Public Use
  Company Number: US-JNJFOC-20090304276

PATIENT
  Sex: Female
  Weight: 49.9 kg

DRUGS (6)
  1. DURAGESIC-100 [Suspect]
     Indication: CLUSTER HEADACHE
     Route: 062
  2. ACTIQ [Suspect]
     Indication: CLUSTER HEADACHE
     Dosage: TOTAL DAILY DOSE OF 7200 UG
     Route: 002
  3. SINGULAIR [Concomitant]
  4. SYNTHROID [Concomitant]
  5. WELLBUTRIN [Concomitant]
  6. VERAPAMIL [Concomitant]

REACTIONS (2)
  - DRUG DETOXIFICATION [None]
  - WITHDRAWAL SYNDROME [None]
